FAERS Safety Report 5972878-1 (Version None)
Quarter: 2008Q4

REPORT INFORMATION
  Report Type: 
  Country: None (occurrence: None)
  Receive Date: 20081125
  Receipt Date: 20081117
  Transmission Date: 20090506
  Serious: Yes (Death)
  Sender: FDA-Public Use
  Company Number: MA-1167612

PATIENT

DRUGS (1)
  1. BETOPTIC [Suspect]
     Dosage: 1 GTT OD BID
     Route: 064
     Dates: start: 20020101

REACTIONS (2)
  - DEATH NEONATAL [None]
  - MATERNAL DRUGS AFFECTING FOETUS [None]
